FAERS Safety Report 5685558-7 (Version None)
Quarter: 2008Q1

REPORT INFORMATION
  Report Type: 
  Country: None (occurrence: None)
  Receive Date: 20080328
  Receipt Date: 20070827
  Transmission Date: 20080703
  Serious: No
  Sender: FDA-Public Use
  Company Number: US-BAYER-US-2007-032157

PATIENT
  Age: 33 Year
  Sex: Female
  Weight: 118 kg

DRUGS (9)
  1. MIRENA [Suspect]
     Indication: ENDOMETRIOSIS
     Route: 015
     Dates: start: 20070810
  2. TRAZODONE HCL [Concomitant]
  3. LOVASTATIN [Concomitant]
  4. SPIRONOLACTONE [Concomitant]
  5. OMEPRAZOLE [Concomitant]
  6. METHADON HCL TAB [Concomitant]
  7. DICYCLOMINE [Concomitant]
  8. EFFEXOR [Concomitant]
  9. METFORMIN HCL [Concomitant]

REACTIONS (3)
  - ARTHRALGIA [None]
  - MUSCLE SPASMS [None]
  - OEDEMA PERIPHERAL [None]
